FAERS Safety Report 17705431 (Version 13)
Quarter: 2023Q1

REPORT INFORMATION
  Report Type: Spontaneous
  Country: GB (occurrence: GB)
  Receive Date: 20200424
  Receipt Date: 20230224
  Transmission Date: 20230418
  Serious: Yes (Hospitalization, Congenital Anomaly, Other)
  Sender: FDA-Public Use
  Company Number: GB-GILEAD-2012-0060479

PATIENT

DRUGS (64)
  1. TENOFOVIR DISOPROXIL FUMARATE [Suspect]
     Active Substance: TENOFOVIR DISOPROXIL FUMARATE
     Indication: HIV infection
     Dosage: 245 MG, QD
     Route: 064
     Dates: start: 20100610, end: 20100629
  2. TENOFOVIR DISOPROXIL FUMARATE [Suspect]
     Active Substance: TENOFOVIR DISOPROXIL FUMARATE
     Dosage: 300 MG, QD
     Route: 064
     Dates: start: 20100610, end: 20100629
  3. ZIDOVUDINE [Suspect]
     Active Substance: ZIDOVUDINE
     Indication: Antiretroviral therapy
     Dosage: 600 MG, QD
     Route: 064
     Dates: start: 20090101, end: 20100610
  4. ZIDOVUDINE [Suspect]
     Active Substance: ZIDOVUDINE
     Indication: HIV infection
     Dosage: 600 MILLIGRAM, QD (MOTHER DOSE)
     Route: 064
     Dates: start: 20090110, end: 20100610
  5. ZIDOVUDINE [Suspect]
     Active Substance: ZIDOVUDINE
     Dosage: 800 MG, QD
     Route: 064
     Dates: start: 20100610
  6. ZIDOVUDINE [Suspect]
     Active Substance: ZIDOVUDINE
     Dosage: UNK
     Route: 064
     Dates: start: 20090922, end: 20100610
  7. ZIDOVUDINE [Suspect]
     Active Substance: ZIDOVUDINE
     Dosage: 600 MILLIGRAM, QD (MOTHER DOSE)
     Route: 064
     Dates: start: 20090110, end: 20100610
  8. ZIDOVUDINE [Suspect]
     Active Substance: ZIDOVUDINE
     Dosage: 800 MG, QD
     Route: 064
     Dates: start: 20100610
  9. ZIDOVUDINE [Suspect]
     Active Substance: ZIDOVUDINE
     Dosage: 800 MG, QD
     Route: 064
     Dates: start: 20100610
  10. ZIDOVUDINE [Suspect]
     Active Substance: ZIDOVUDINE
     Dosage: 800 MG, QD
     Route: 064
     Dates: start: 20100610
  11. ZIDOVUDINE [Suspect]
     Active Substance: ZIDOVUDINE
     Dosage: 800 MG, QD
     Route: 064
     Dates: start: 20100610
  12. ZIDOVUDINE [Suspect]
     Active Substance: ZIDOVUDINE
     Dosage: 800 MG, QD
     Route: 064
     Dates: start: 20100610
  13. LAMIVUDINE [Suspect]
     Active Substance: LAMIVUDINE
     Indication: Antiretroviral therapy
     Dosage: 150 MG
     Route: 064
     Dates: start: 20090101, end: 20100610
  14. LAMIVUDINE [Suspect]
     Active Substance: LAMIVUDINE
     Indication: Antiviral treatment
     Dosage: 300 MG, QD
     Route: 064
  15. LAMIVUDINE [Suspect]
     Active Substance: LAMIVUDINE
     Indication: HIV infection
     Dosage: 300 MILLIGRAM, QD (MOTHER DOSE: UNK)
     Route: 064
     Dates: start: 20090101, end: 20100610
  16. LAMIVUDINE [Suspect]
     Active Substance: LAMIVUDINE
     Dosage: 300 MG, QD
     Route: 064
     Dates: start: 20100610
  17. LAMIVUDINE [Suspect]
     Active Substance: LAMIVUDINE
     Dosage: MOTHER DOSE: UNK
     Route: 064
     Dates: start: 20100610
  18. LAMIVUDINE [Suspect]
     Active Substance: LAMIVUDINE
     Dosage: 300 MG, QD
     Route: 064
  19. LAMIVUDINE [Suspect]
     Active Substance: LAMIVUDINE
     Dosage: 150 MILLIGRAM, QD
     Route: 064
  20. LAMIVUDINE [Suspect]
     Active Substance: LAMIVUDINE
     Dosage: MOTHER DOSE ( DOSE# 1. START DATE: MONTH UNKNOWN)
     Route: 064
     Dates: start: 20100610, end: 20100610
  21. LAMIVUDINE [Suspect]
     Active Substance: LAMIVUDINE
     Dosage: UNK
     Route: 064
     Dates: start: 20090922, end: 20100610
  22. LAMIVUDINE [Suspect]
     Active Substance: LAMIVUDINE
     Dosage: 150 MG
     Route: 064
  23. LAMIVUDINE [Suspect]
     Active Substance: LAMIVUDINE
     Dosage: 150 MILLIGRAM, QD (DOSE: START DATE: MONTH UNKNOWN)UNK
     Route: 064
  24. LAMIVUDINE [Suspect]
     Active Substance: LAMIVUDINE
     Dosage: 300 MILLIGRAM, QD (DOSE# 1. START DATE: MONTH UNKNOWN)
     Route: 064
     Dates: start: 20090101, end: 20100610
  25. LAMIVUDINE [Suspect]
     Active Substance: LAMIVUDINE
     Dosage: UNKDOSE 1. START DATE: MONTH UNKNOWN
     Route: 064
     Dates: start: 20100610, end: 20100610
  26. LAMIVUDINE [Suspect]
     Active Substance: LAMIVUDINE
     Dosage: UNKMOTHER DOSE: UNK
     Route: 064
     Dates: start: 20100610, end: 20100610
  27. LAMIVUDINE [Suspect]
     Active Substance: LAMIVUDINE
     Dosage: 150 MG
     Route: 064
  28. TENOFOVIR DISOPROXIL FUMARATE [Suspect]
     Active Substance: TENOFOVIR DISOPROXIL FUMARATE
     Indication: HIV infection
     Dosage: UNK STOP DATE: CONTINUING
     Route: 064
     Dates: start: 20100610
  29. TENOFOVIR DISOPROXIL FUMARATE [Suspect]
     Active Substance: TENOFOVIR DISOPROXIL FUMARATE
     Dosage: UNK STOP DATE: CONTINUING
     Route: 064
     Dates: start: 20100610
  30. TENOFOVIR DISOPROXIL FUMARATE [Suspect]
     Active Substance: TENOFOVIR DISOPROXIL FUMARATE
     Dosage: UNK STOP DATE: CONTINUING
     Route: 064
     Dates: start: 20100610
  31. ISENTRESS [Suspect]
     Active Substance: RALTEGRAVIR POTASSIUM
     Indication: Antiretroviral therapy
     Dosage: 800 MG, QD
     Route: 064
  32. ISENTRESS [Suspect]
     Active Substance: RALTEGRAVIR POTASSIUM
     Indication: HIV infection
     Dosage: 800 MG, QD (PATIENT NOT TAKING MEDICINE AT CONCEPTION)
     Route: 064
     Dates: start: 20100610
  33. ISENTRESS [Suspect]
     Active Substance: RALTEGRAVIR POTASSIUM
     Dosage: 1 DF, QD
     Route: 064
     Dates: start: 20100610
  34. ISENTRESS [Suspect]
     Active Substance: RALTEGRAVIR POTASSIUM
     Dosage: 800 MG, QD
     Route: 064
  35. ISENTRESS [Suspect]
     Active Substance: RALTEGRAVIR POTASSIUM
     Dosage: 800 MG, QD
     Route: 064
     Dates: start: 20100610
  36. ISENTRESS [Suspect]
     Active Substance: RALTEGRAVIR POTASSIUM
     Indication: HIV infection
     Dosage: UNK
     Route: 065
     Dates: start: 20100610
  37. ISENTRESS [Suspect]
     Active Substance: RALTEGRAVIR POTASSIUM
     Indication: HIV infection
  38. LOPINAVIR\RITONAVIR [Suspect]
     Active Substance: LOPINAVIR\RITONAVIR
     Indication: HIV infection
     Dosage: UNK
     Route: 064
     Dates: start: 20100610, end: 20100629
  39. LOPINAVIR\RITONAVIR [Suspect]
     Active Substance: LOPINAVIR\RITONAVIR
     Indication: Antiretroviral therapy
     Dosage: UNK
     Route: 064
     Dates: start: 20100710
  40. LOPINAVIR\RITONAVIR [Suspect]
     Active Substance: LOPINAVIR\RITONAVIR
     Indication: Foetal exposure during pregnancy
     Dosage: UNK
     Route: 065
  41. KALETRA [Suspect]
     Active Substance: LOPINAVIR\RITONAVIR
     Indication: HIV infection
     Dosage: UNKMATERNAL DOSE: UNKNOWN
     Route: 064
     Dates: start: 20100610
  42. KALETRA [Suspect]
     Active Substance: LOPINAVIR\RITONAVIR
     Indication: Antiretroviral therapy
     Dosage: UNKMOTHER DOSE: UNK
     Route: 064
     Dates: start: 20100710
  43. KALETRA [Suspect]
     Active Substance: LOPINAVIR\RITONAVIR
     Indication: Foetal exposure during pregnancy
     Dosage: UNK
     Route: 065
  44. KALETRA [Suspect]
     Active Substance: LOPINAVIR\RITONAVIR
     Dosage: UNK
     Route: 065
  45. KALETRA [Suspect]
     Active Substance: LOPINAVIR\RITONAVIR
     Dosage: UNK
     Route: 065
  46. RALTEGRAVIR [Suspect]
     Active Substance: RALTEGRAVIR
     Indication: Foetal exposure during pregnancy
     Dosage: 800 MG, QD (PATIENT NOT TAKING MEDICINE AT CONCEPTION)
     Route: 064
     Dates: start: 20100610
  47. RALTEGRAVIR [Suspect]
     Active Substance: RALTEGRAVIR
     Indication: HIV infection
     Dosage: 800 MG, QD (PATIENT NOT TAKING MEDICINE AT CONCEPTION)
     Route: 064
     Dates: start: 20100610
  48. RALTEGRAVIR [Suspect]
     Active Substance: RALTEGRAVIR
     Dosage: 800 MG, QD (PATIENT NOT TAKING MEDICINE AT CONCEPTION)
     Route: 064
     Dates: start: 20100610
  49. VIRAMUNE [Suspect]
     Active Substance: NEVIRAPINE
     Indication: Antiretroviral therapy
     Dosage: 400 MILLIGRAM, QD (DOSE# 1. START DATE: MONTH UNKNOWN )
     Route: 064
     Dates: start: 20090101, end: 20100610
  50. VIRAMUNE [Suspect]
     Active Substance: NEVIRAPINE
     Indication: HIV infection
  51. VIRAMUNE [Suspect]
     Active Substance: NEVIRAPINE
     Indication: Foetal exposure during pregnancy
  52. RITONAVIR [Suspect]
     Active Substance: RITONAVIR
     Indication: Foetal exposure during pregnancy
     Dosage: 800 MG, QD
     Route: 064
     Dates: start: 20100610, end: 20100629
  53. RITONAVIR [Suspect]
     Active Substance: RITONAVIR
     Indication: Foetal exposure during pregnancy
     Dosage: UNK
     Route: 065
  54. RITONAVIR [Suspect]
     Active Substance: RITONAVIR
     Indication: HIV infection
  55. NEVIRAPINE [Suspect]
     Active Substance: NEVIRAPINE
     Indication: Antiretroviral therapy
     Dosage: 400 MILLIGRAM, QD MOTHER DOSE: 400 MG, QD
     Route: 064
     Dates: start: 20090101, end: 20100610
  56. NEVIRAPINE [Suspect]
     Active Substance: NEVIRAPINE
     Indication: HIV infection
     Dosage: 400 MILLIGRAM, QD
     Route: 064
     Dates: start: 20090101, end: 20100610
  57. NEVIRAPINE [Suspect]
     Active Substance: NEVIRAPINE
     Dosage: 400 MG, QD MOTHER DOSE: 400 MG, QD
     Route: 064
     Dates: start: 20090101, end: 20100610
  58. NEVIRAPINE [Suspect]
     Active Substance: NEVIRAPINE
     Dosage: 400 MG, QD (MATERNAL DOSE: 400MG QD)
     Route: 064
     Dates: start: 20100610
  59. NEVIRAPINE [Suspect]
     Active Substance: NEVIRAPINE
     Dosage: UNK
     Route: 064
     Dates: start: 20090922, end: 20100610
  60. NEVIRAPINE [Suspect]
     Active Substance: NEVIRAPINE
     Dosage: UNK (MATERNAL DOSE: 400MG QD)
     Route: 064
     Dates: start: 20100610
  61. RALTEGRAVIR POTASSIUM [Suspect]
     Active Substance: RALTEGRAVIR POTASSIUM
     Indication: HIV infection
     Dosage: UNK
     Route: 065
  62. RALTEGRAVIR POTASSIUM [Suspect]
     Active Substance: RALTEGRAVIR POTASSIUM
     Indication: Foetal exposure during pregnancy
  63. RALTEGRAVIR POTASSIUM [Suspect]
     Active Substance: RALTEGRAVIR POTASSIUM
     Indication: Antiretroviral therapy
  64. RALTEGRAVIR POTASSIUM [Suspect]
     Active Substance: RALTEGRAVIR POTASSIUM
     Indication: Foetal exposure during pregnancy

REACTIONS (2)
  - Volvulus [Not Recovered/Not Resolved]
  - Foetal exposure during pregnancy [Recovered/Resolved]

NARRATIVE: CASE EVENT DATE: 20100610
